FAERS Safety Report 11393802 (Version 2)
Quarter: 2015Q3

REPORT INFORMATION
  Report Type: Spontaneous
  Country: DE (occurrence: DE)
  Receive Date: 20150819
  Receipt Date: 20150916
  Transmission Date: 20151125
  Serious: No
  Sender: FDA-Public Use
  Company Number: DE-AMGEN-DEUSP2015083090

PATIENT
  Sex: Female

DRUGS (4)
  1. MIMPARA [Suspect]
     Active Substance: CINACALCET HYDROCHLORIDE
     Indication: PRODUCT USED FOR UNKNOWN INDICATION
     Dosage: 30 MG, QD
     Route: 065
  2. ROCALTROL [Concomitant]
     Active Substance: CALCITRIOL
  3. MARCUMAR [Concomitant]
     Active Substance: PHENPROCOUMON
  4. CALCIUM ACETATE. [Concomitant]
     Active Substance: CALCIUM ACETATE

REACTIONS (2)
  - Blood parathyroid hormone decreased [Unknown]
  - Blood calcium decreased [Unknown]
